FAERS Safety Report 11784954 (Version 1)
Quarter: 2015Q4

REPORT INFORMATION
  Report Type: Spontaneous
  Country: US (occurrence: None)
  Receive Date: 20151124
  Receipt Date: 20151124
  Transmission Date: 20160305
  Serious: Yes (Other)
  Sender: FDA-Public Use
  Company Number: BL-2015-021931

PATIENT
  Age: 12 Year
  Sex: Female

DRUGS (1)
  1. ACNEFREE CLEAR SKIN TREATMENTS 24 HOUR SEVERE ACNE CLEARING SYSTEM [Suspect]
     Active Substance: BENZOYL PEROXIDE
     Indication: ACNE
     Route: 061
     Dates: start: 20150915, end: 20150916

REACTIONS (3)
  - Chemical injury [None]
  - Reaction to drug excipients [None]
  - Anaphylactic shock [None]

NARRATIVE: CASE EVENT DATE: 2015
